FAERS Safety Report 18270536 (Version 1)
Quarter: 2020Q3

REPORT INFORMATION
  Report Type: Spontaneous
  Country: US (occurrence: US)
  Receive Date: 20200916
  Receipt Date: 20200916
  Transmission Date: 20201103
  Serious: No
  Sender: FDA-Public Use
  Company Number: US-AUROBINDO-AUR-APL-2020-026530

PATIENT

DRUGS (1)
  1. ALPRAZOLAM TABLETS USP 2MG [Suspect]
     Active Substance: ALPRAZOLAM
     Indication: PANIC ATTACK
     Dosage: 1 BREAKTHROUGH
     Route: 065

REACTIONS (1)
  - Drug ineffective [Unknown]
